FAERS Safety Report 20020995 (Version 6)
Quarter: 2022Q2

REPORT INFORMATION
  Report Type: Report from Study
  Country: US (occurrence: US)
  Receive Date: 20211101
  Receipt Date: 20220531
  Transmission Date: 20220721
  Serious: Yes (Other)
  Sender: FDA-Public Use
  Company Number: US-NOVARTISTESTPH-NVSC2021US249322

PATIENT
  Age: 62 Year
  Sex: Female

DRUGS (2)
  1. GILENYA [Suspect]
     Active Substance: FINGOLIMOD HYDROCHLORIDE
     Indication: Multiple sclerosis
     Dosage: 0.5 MG, QD
     Route: 048
  2. GILENYA [Suspect]
     Active Substance: FINGOLIMOD HYDROCHLORIDE
     Dosage: 0.5 MG, QD
     Route: 048
     Dates: start: 20171214

REACTIONS (12)
  - Multiple sclerosis [Unknown]
  - Femur fracture [Unknown]
  - Lower limb fracture [Unknown]
  - Hypoaesthesia [Unknown]
  - Contusion [Unknown]
  - Anxiety [Unknown]
  - Insomnia [Unknown]
  - Fall [Unknown]
  - Paraesthesia [Unknown]
  - Gait disturbance [Unknown]
  - Hypokinesia [Unknown]
  - Tremor [Unknown]

NARRATIVE: CASE EVENT DATE: 20200215
